FAERS Safety Report 17971956 (Version 1)
Quarter: 2020Q3

REPORT INFORMATION
  Report Type: Other
  Country: DE (occurrence: DE)
  Receive Date: 20200701
  Receipt Date: 20200701
  Transmission Date: 20201103
  Serious: Yes (Other)
  Sender: FDA-Public Use
  Company Number: DE-CELLTRION INC.-2020DE023743

PATIENT

DRUGS (3)
  1. CAPECITABINE. [Suspect]
     Active Substance: CAPECITABINE
     Indication: BREAST CANCER
     Dosage: DATE OF LAST DOSE(3500 MG) ADMINISTERED PRIOR TO ONSET: 04/FEB/2020
     Route: 048
  2. TRASTUZUMAB (UNKNOWN) [Suspect]
     Active Substance: TRASTUZUMAB
     Indication: BREAST CANCER
     Dosage: LAST DOSE ADMINISTERED PRIOR TO ONSET: 470 MG
     Route: 065
     Dates: start: 20200122, end: 20200122
  3. PERTUZUMAB. [Suspect]
     Active Substance: PERTUZUMAB
     Indication: BREAST CANCER
     Dosage: DOSE OF LAST ADMINISTERED PERTUZUMAB PRIOR TO ADVERSE EVENT ONSET: 840 MG
     Route: 042
     Dates: start: 20200122, end: 20200122

REACTIONS (1)
  - Polyneuropathy [Recovered/Resolved]

NARRATIVE: CASE EVENT DATE: 20200212
